FAERS Safety Report 6672089-0 (Version None)
Quarter: 2010Q2

REPORT INFORMATION
  Report Type: 
  Country: None (occurrence: None)
  Receive Date: 20100407
  Receipt Date: 20100407
  Transmission Date: 20101027
  Serious: Yes (Hospitalization)
  Sender: FDA-Public Use
  Company Number: None

PATIENT
  Sex: Male
  Weight: 88.5 kg

DRUGS (2)
  1. CARBOPLATIN [Suspect]
     Dosage: 150 MG
     Dates: end: 20060503
  2. TAXOL [Suspect]
     Dosage: 30 MG
     Dates: end: 20060503

REACTIONS (9)
  - ABDOMINAL PAIN [None]
  - DIARRHOEA [None]
  - DIVERTICULITIS [None]
  - DYSPEPSIA [None]
  - ENTEROVESICAL FISTULA [None]
  - NAUSEA [None]
  - PYURIA [None]
  - URINARY TRACT INFECTION [None]
  - VOMITING [None]
